FAERS Safety Report 8216266-6 (Version None)
Quarter: 2012Q1

REPORT INFORMATION
  Report Type: 
  Country: None (occurrence: None)
  Receive Date: 20120316
  Receipt Date: 20120312
  Transmission Date: 20120608
  Serious: Yes (Other)
  Sender: FDA-Public Use
  Company Number: PHHY2011US25494

PATIENT
  Sex: Female

DRUGS (7)
  1. LAMOTRIGINE [Concomitant]
     Dosage: 100 MG, TID
  2. GILENYA [Suspect]
     Indication: MULTIPLE SCLEROSIS
     Dosage: 0.5 MG, QD
     Route: 048
     Dates: start: 20110318
  3. LIPITOR [Concomitant]
     Dosage: 80 MG, UNK
  4. LEVETIRACETAM [Concomitant]
  5. LORAZEPAM [Concomitant]
     Dosage: 1 MG, QID
  6. RAMITRIL [Concomitant]
     Dosage: 10 MG, QD
  7. AMLODIPINE BESYLATE [Concomitant]
     Dosage: UNK

REACTIONS (7)
  - CONVULSION [None]
  - URINARY INCONTINENCE [None]
  - CRYING [None]
  - ANXIETY [None]
  - DEPRESSION [None]
  - RASH [None]
  - EMOTIONAL DISORDER [None]
